FAERS Safety Report 11453832 (Version 1)
Quarter: 2015Q3

REPORT INFORMATION
  Report Type: Spontaneous
  Country: US (occurrence: US)
  Receive Date: 20150903
  Receipt Date: 20150903
  Transmission Date: 20151125
  Serious: Yes (Hospitalization, Other)
  Sender: FDA-Public Use
  Company Number: US-BIOGENIDEC-2015BI121232

PATIENT
  Sex: Female

DRUGS (1)
  1. TYSABRI [Suspect]
     Active Substance: NATALIZUMAB
     Indication: MULTIPLE SCLEROSIS
     Route: 042

REACTIONS (9)
  - Bacterial infection [Unknown]
  - General symptom [Unknown]
  - Colitis [Unknown]
  - Decreased immune responsiveness [Unknown]
  - Multiple sclerosis relapse [Unknown]
  - Liver function test abnormal [Unknown]
  - Abdominal pain upper [Unknown]
  - Cholecystitis [Unknown]
  - Influenza [Unknown]

NARRATIVE: CASE EVENT DATE: 201508
